FAERS Safety Report 8076324-6 (Version None)
Quarter: 2012Q1

REPORT INFORMATION
  Report Type: 
  Country: None (occurrence: None)
  Receive Date: 20120127
  Receipt Date: 20120120
  Transmission Date: 20120608
  Serious: No
  Sender: FDA-Public Use
  Company Number: US-B.I. PHARMACEUTICALS,INC./RIDGEFIELD-2012-BP-01217BP

PATIENT

DRUGS (3)
  1. JANTOVEN [Concomitant]
  2. METFORMIN HCL [Concomitant]
     Indication: DIABETES MELLITUS
  3. PRADAXA [Suspect]

REACTIONS (1)
  - BLOOD GLUCOSE DECREASED [None]
